FAERS Safety Report 9285432 (Version 2)
Quarter: 2013Q3

REPORT INFORMATION
  Report Type: Spontaneous
  Country: US (occurrence: US)
  Receive Date: 20130513
  Receipt Date: 20130708
  Transmission Date: 20140515
  Serious: No
  Sender: FDA-Public Use
  Company Number: US-PFIZER INC-2013142896

PATIENT
  Age: 68 Year
  Sex: Female

DRUGS (1)
  1. LEVOTHROID [Suspect]
     Indication: HYPOTHYROIDISM
     Dosage: 88 UG, 1 DAILY
     Route: 048

REACTIONS (1)
  - Alopecia [Recovered/Resolved]
